FAERS Safety Report 8119548-1 (Version None)
Quarter: 2012Q1

REPORT INFORMATION
  Report Type: 
  Country: None (occurrence: None)
  Receive Date: 20120207
  Receipt Date: 20120131
  Transmission Date: 20120608
  Serious: Yes (Hospitalization)
  Sender: FDA-Public Use
  Company Number: PHEH2011US009252

PATIENT
  Sex: Female

DRUGS (4)
  1. GILENYA [Suspect]
     Indication: RELAPSING-REMITTING MULTIPLE SCLEROSIS
     Dosage: 0.5 MG, QD
     Route: 048
     Dates: start: 20111001, end: 20111102
  2. GABAPENTIN [Concomitant]
     Dosage: 600 MG, TID
  3. BACLOFEN [Concomitant]
     Dosage: 20 MG, QID
  4. ZARONTIN [Concomitant]
     Dosage: UNK UKN, UNK

REACTIONS (2)
  - DYSPNOEA [None]
  - PNEUMONITIS [None]
